FAERS Safety Report 7409669-0 (Version None)
Quarter: 2011Q2

REPORT INFORMATION
  Report Type: 
  Country: None (occurrence: None)
  Receive Date: 20110412
  Receipt Date: 20110404
  Transmission Date: 20111010
  Serious: Yes (Hospitalization)
  Sender: FDA-Public Use
  Company Number: GB-MPIJNJ-2011-01140

PATIENT

DRUGS (3)
  1. DOXORUBICIN [Suspect]
     Indication: MULTIPLE MYELOMA
     Dosage: 18 MG, UNK
     Route: 042
     Dates: start: 20110121, end: 20110131
  2. DEXAMETHASONE [Suspect]
     Indication: MULTIPLE MYELOMA
     Dosage: 40 MG, UNK
     Route: 048
     Dates: start: 20110121, end: 20110210
  3. VELCADE [Suspect]
     Indication: MULTIPLE MYELOMA
     Dosage: 2.6 MG, UNK
     Route: 042
     Dates: start: 20110121, end: 20110131

REACTIONS (2)
  - NEUTROPENIC SEPSIS [None]
  - SEPSIS [None]
